FAERS Safety Report 4809240-0 (Version None)
Quarter: 2005Q4

REPORT INFORMATION
  Report Type: 
  Country: None (occurrence: None)
  Receive Date: 20051021
  Receipt Date: 20010919
  Transmission Date: 20060501
  Serious: Yes (Other)
  Sender: FDA-Public Use
  Company Number: GBS010909477

PATIENT
  Age: 64 Year
  Sex: Male

DRUGS (2)
  1. ZYPREXA [Suspect]
     Indication: PSYCHOTIC DISORDER
     Dosage: 10 MG
     Dates: start: 20010825, end: 20010828
  2. RISPERIDONE [Concomitant]

REACTIONS (1)
  - NEUTROPENIA [None]
